FAERS Safety Report 25443147 (Version 1)
Quarter: 2025Q2

REPORT INFORMATION
  Report Type: Spontaneous
  Country: FR (occurrence: FR)
  Receive Date: 20250617
  Receipt Date: 20250617
  Transmission Date: 20250717
  Serious: Yes (Life-Threatening, Other)
  Sender: AUROBINDO
  Company Number: FR-AFSSAPS-NC2025000821

PATIENT
  Age: 62 Year
  Sex: Male
  Weight: 53 kg

DRUGS (3)
  1. DULOXETINE [Suspect]
     Active Substance: DULOXETINE
     Indication: Product used for unknown indication
     Route: 048
     Dates: start: 20250509, end: 20250509
  2. SKENAN [Suspect]
     Active Substance: MORPHINE SULFATE
     Indication: Product used for unknown indication
     Route: 048
     Dates: start: 20250509, end: 20250509
  3. MORPHINE SULFATE [Suspect]
     Active Substance: MORPHINE SULFATE
     Indication: Product used for unknown indication
     Route: 048
     Dates: start: 20250509, end: 20250509

REACTIONS (3)
  - Coma [Recovered/Resolved]
  - Miosis [Recovered/Resolved]
  - Bradypnoea [Recovered/Resolved]

NARRATIVE: CASE EVENT DATE: 20250509
